FAERS Safety Report 13020498 (Version 1)
Quarter: 2016Q4

REPORT INFORMATION
  Report Type: Spontaneous
  Country: SE (occurrence: SE)
  Receive Date: 20161212
  Receipt Date: 20161212
  Transmission Date: 20170207
  Serious: Yes (Other)
  Sender: FDA-Public Use
  Company Number: SE-TEVA-716739ACC

PATIENT
  Age: 70 Year
  Sex: Male

DRUGS (1)
  1. BISOCARD 2,5 MG TABLET [Suspect]
     Active Substance: BISOPROLOL
     Indication: CORONARY ARTERY BYPASS
     Dosage: 1 TABLET MORNING, 2 PILLS EVENING
     Dates: start: 20130907

REACTIONS (11)
  - Musculoskeletal stiffness [Not Recovered/Not Resolved]
  - Cardiac fibrillation [Not Recovered/Not Resolved]
  - Nightmare [Not Recovered/Not Resolved]
  - Muscle spasms [Not Recovered/Not Resolved]
  - Asthenia [Not Recovered/Not Resolved]
  - Hypoacusis [Not Recovered/Not Resolved]
  - Hypoaesthesia [Not Recovered/Not Resolved]
  - Myalgia [Not Recovered/Not Resolved]
  - Fatigue [Not Recovered/Not Resolved]
  - Gastrointestinal motility disorder [Not Recovered/Not Resolved]
  - Dry eye [Not Recovered/Not Resolved]

NARRATIVE: CASE EVENT DATE: 2014
